FAERS Safety Report 5278344-3 (Version None)
Quarter: 2007Q1

REPORT INFORMATION
  Report Type: 
  Country: None (occurrence: None)
  Receive Date: 20061213
  Receipt Date: 20030930
  Transmission Date: 20070707
  Serious: No
  Sender: FDA-Public Use
  Company Number: 2003UW03488

PATIENT
  Age: 51 Year
  Sex: Female

DRUGS (3)
  1. SEROQUEL [Suspect]
     Dosage: 200 MG BID PO
     Route: 048
     Dates: start: 20020822
  2. PAXIL CR [Concomitant]
  3. AMBIEN [Concomitant]

REACTIONS (1)
  - CATARACT [None]
